FAERS Safety Report 5657992-2 (Version None)
Quarter: 2008Q1

REPORT INFORMATION
  Report Type: 
  Country: None (occurrence: None)
  Receive Date: 20080310
  Receipt Date: 20080229
  Transmission Date: 20080703
  Serious: Yes (Hospitalization, Other)
  Sender: FDA-Public Use
  Company Number: PHHO2008US03189

PATIENT
  Age: 68 Year
  Sex: Male

DRUGS (13)
  1. NORTRIPTYLINE HCL [Concomitant]
  2. ATENOLOL [Concomitant]
  3. ZIAGEN [Concomitant]
  4. NIASPAN [Concomitant]
  5. CYCLOBENZAPRINE HCL [Concomitant]
  6. HYDROCODONE BITARTRATE + ACETAMINOPHEN [Concomitant]
  7. VIREAD [Concomitant]
  8. SULFAMETHOXAZOLE AND TRIMETHOPRIM [Concomitant]
  9. ALLOPURINOL [Concomitant]
  10. LISINOPRIL AND HYDROCHLOROTHIAZIDE [Concomitant]
  11. ASPIRIN [Concomitant]
  12. GLUCOSAMINE W/CHONDROITIN [Concomitant]
  13. ALDESLEUKIN [Suspect]
     Indication: HIV INFECTION
     Dosage: 6 MIU, BID
     Route: 058
     Dates: end: 20080205

REACTIONS (17)
  - CLOSED FRACTURE MANIPULATION [None]
  - DIZZINESS [None]
  - ECCHYMOSIS [None]
  - FACIAL BONES FRACTURE [None]
  - FACIAL PAIN [None]
  - FALL [None]
  - GAIT DISTURBANCE [None]
  - HEAD INJURY [None]
  - INTRAVENTRICULAR HAEMORRHAGE [None]
  - ISCHAEMIA [None]
  - ORTHOSTATIC HYPOTENSION [None]
  - SKIN LACERATION [None]
  - SUBARACHNOID HAEMORRHAGE [None]
  - SYNCOPE [None]
  - TACHYCARDIA [None]
  - TROPONIN INCREASED [None]
  - VISION BLURRED [None]
